FAERS Safety Report 24965126 (Version 1)
Quarter: 2025Q1

REPORT INFORMATION
  Report Type: Spontaneous
  Country: US (occurrence: US)
  Receive Date: 20250213
  Receipt Date: 20250213
  Transmission Date: 20250409
  Serious: No
  Sender: PADAGIS
  Company Number: US-PADAGIS-2025PAD00145

PATIENT

DRUGS (1)
  1. ESTRADIOL VAGINAL [Suspect]
     Active Substance: ESTRADIOL
     Indication: Urogenital atrophy
     Route: 065

REACTIONS (2)
  - Pruritus [Unknown]
  - Inappropriate schedule of product administration [Unknown]
